FAERS Safety Report 12808734 (Version 2)
Quarter: 2020Q2

REPORT INFORMATION
  Report Type: Spontaneous
  Country: CA (occurrence: CA)
  Receive Date: 20161004
  Receipt Date: 20200623
  Transmission Date: 20200713
  Serious: Yes (Other)
  Sender: FDA-Public Use
  Company Number: CA-009507513-1610CAN000661

PATIENT
  Age: 73 Year
  Sex: Male

DRUGS (7)
  1. ONCOTICE [Suspect]
     Active Substance: BACILLUS CALMETTE-GUERIN SUBSTRAIN TICE LIVE ANTIGEN
     Indication: BLADDER CANCER
     Dosage: 50.0 ML, EVERY 1 WEEK
     Route: 043
  2. WARFARIN [Concomitant]
     Active Substance: WARFARIN
     Dosage: UNK
  3. LORAZEPAM. [Concomitant]
     Active Substance: LORAZEPAM
     Dosage: UNK UNK, PRN
  4. ONCOTICE [Suspect]
     Active Substance: BACILLUS CALMETTE-GUERIN SUBSTRAIN TICE LIVE ANTIGEN
     Dosage: 1 VIAL (1X10^6 CFU) IN 50 ML, NS WEEKLY X3, REPEAT EVERY 6 MONTHS; ROUTE: BLADDER INSTILLATION
     Route: 043
     Dates: start: 20150801, end: 20160226
  5. BISOPROLOL [Concomitant]
     Active Substance: BISOPROLOL
     Dosage: UNK
  6. RABEPRAZOLE SODIUM. [Concomitant]
     Active Substance: RABEPRAZOLE SODIUM
     Dosage: UNK
  7. TRAZODONE HYDROCHLORIDE. [Concomitant]
     Active Substance: TRAZODONE HYDROCHLORIDE
     Dosage: UNK

REACTIONS (17)
  - Amnesia [Recovered/Resolved]
  - Rhabdomyolysis [Recovered/Resolved]
  - Adverse drug reaction [Recovered/Resolved]
  - Decreased appetite [Recovered/Resolved]
  - Myoglobinuria [Recovered/Resolved]
  - Sepsis [Recovered/Resolved]
  - Hypokinesia [Recovered/Resolved]
  - Seizure [Recovered/Resolved]
  - Dehydration [Recovered/Resolved]
  - Myalgia [Recovered/Resolved]
  - Pain in extremity [Recovered/Resolved]
  - Confusional state [Recovered/Resolved]
  - Blood creatine phosphokinase increased [Recovered/Resolved]
  - Thirst [Recovered/Resolved]
  - Anal incontinence [Recovered/Resolved]
  - Asthenia [Recovered/Resolved]
  - Incontinence [Recovered/Resolved]

NARRATIVE: CASE EVENT DATE: 20160226
